FAERS Safety Report 18513553 (Version 1)
Quarter: 2020Q4

REPORT INFORMATION
  Report Type: Spontaneous
  Country: US (occurrence: US)
  Receive Date: 20201117
  Receipt Date: 20201117
  Transmission Date: 20210114
  Serious: No
  Sender: FDA-Public Use
  Company Number: US-TAKEDA-2020TUS046737

PATIENT
  Sex: Female
  Weight: 56.69 kg

DRUGS (17)
  1. EPINEPHRINE. [Concomitant]
     Active Substance: EPINEPHRINE
  2. FISH OIL [Concomitant]
     Active Substance: FISH OIL
  3. CEFUROXIME. [Concomitant]
     Active Substance: CEFUROXIME
  4. AMOXICILLIN. [Concomitant]
     Active Substance: AMOXICILLIN
  5. VITAMIN D3 [Concomitant]
     Active Substance: CHOLECALCIFEROL
  6. FLUTICASONE. [Concomitant]
     Active Substance: FLUTICASONE
  7. RIZATRIPTAN. [Concomitant]
     Active Substance: RIZATRIPTAN
  8. DIAZEPAM. [Concomitant]
     Active Substance: DIAZEPAM
  9. FIORICET [Concomitant]
     Active Substance: ACETAMINOPHEN\BUTALBITAL\CAFFEINE
  10. PROMETHAZINE [Concomitant]
     Active Substance: PROMETHAZINE HYDROCHLORIDE
  11. CUVITRU [Suspect]
     Active Substance: HUMAN IMMUNOGLOBULIN G
     Indication: IMMUNODEFICIENCY
     Dosage: 3 GRAM, QOD
     Route: 058
     Dates: start: 20170922
  12. LIDOCAIN [LIDOCAINE] [Concomitant]
     Active Substance: LIDOCAINE
  13. CALCIUM [Concomitant]
     Active Substance: CALCIUM
  14. ACYCLOVIR [ACICLOVIR] [Concomitant]
     Active Substance: ACYCLOVIR
  15. MAGNESIUM [Concomitant]
     Active Substance: MAGNESIUM
  16. VITAMINS NOS [Concomitant]
     Active Substance: VITAMINS
  17. PREDNISONE. [Concomitant]
     Active Substance: PREDNISONE

REACTIONS (1)
  - Ear discomfort [Unknown]
